FAERS Safety Report 11632837 (Version 1)
Quarter: 2015Q4

REPORT INFORMATION
  Report Type: Spontaneous
  Country: US (occurrence: None)
  Receive Date: 20151014
  Receipt Date: 20151014
  Transmission Date: 20160304
  Serious: Yes (Hospitalization)
  Sender: FDA-Public Use
  Company Number: None

PATIENT
  Age: 56 Year
  Sex: Female
  Weight: 73.5 kg

DRUGS (1)
  1. CISPLATIN. [Suspect]
     Active Substance: CISPLATIN
     Dates: end: 20150917

REACTIONS (5)
  - Vaginal haemorrhage [None]
  - Nausea [None]
  - Blood glucose increased [None]
  - Anaemia [None]
  - Dizziness [None]

NARRATIVE: CASE EVENT DATE: 20150924
